FAERS Safety Report 7216045-2 (Version None)
Quarter: 2011Q1

REPORT INFORMATION
  Report Type: 
  Country: None (occurrence: None)
  Receive Date: 20110107
  Receipt Date: 20101224
  Transmission Date: 20110831
  Serious: Yes (Other)
  Sender: FDA-Public Use
  Company Number: PHHY2010ES88208

PATIENT
  Age: 43 Year
  Sex: Female

DRUGS (3)
  1. DIPYRONE [Suspect]
     Indication: COLITIS ULCERATIVE
  2. PARACETAMOL [Suspect]
     Indication: COLITIS ULCERATIVE
  3. PIPERACILLIN AND TAZOBACTAM [Suspect]
     Indication: COLITIS ULCERATIVE
     Dosage: 4/0.5G EVERY 12 HOURS

REACTIONS (12)
  - PSORIASIS [None]
  - DRUG RASH WITH EOSINOPHILIA AND SYSTEMIC SYMPTOMS [None]
  - RASH ERYTHEMATOUS [None]
  - HEPATIC ENZYME INCREASED [None]
  - LYMPHOCYTE TRANSFORMATION TEST POSITIVE [None]
  - DERMATITIS [None]
  - LYMPHADENOPATHY [None]
  - PRURITUS [None]
  - RASH MACULO-PAPULAR [None]
  - HUMAN HERPES VIRUS 6 SEROLOGY POSITIVE [None]
  - PYREXIA [None]
  - EOSINOPHILIA [None]
